FAERS Safety Report 14126526 (Version 1)
Quarter: 2017Q4

REPORT INFORMATION
  Report Type: Not Available
  Country: US (occurrence: US)
  Receive Date: 20171025
  Receipt Date: 20171025
  Transmission Date: 20180321
  Serious: No
  Sender: FDA-Public Use
  Company Number: US-NEUROCRINE BIOSCIENCES INC.-2017NBI00913

PATIENT
  Age: 60 Year
  Sex: Female

DRUGS (7)
  1. INGREZZA [Suspect]
     Active Substance: VALBENAZINE
     Route: 048
     Dates: start: 20170807, end: 20170910
  2. LATUDA [Concomitant]
     Active Substance: LURASIDONE HYDROCHLORIDE
  3. ADDERALL [Concomitant]
     Active Substance: AMPHETAMINE ASPARTATE\AMPHETAMINE SULFATE\DEXTROAMPHETAMINE SACCHARATE\DEXTROAMPHETAMINE SULFATE
  4. CRESTOR [Concomitant]
     Active Substance: ROSUVASTATIN CALCIUM
  5. LEVOTHYROXINE. [Concomitant]
     Active Substance: LEVOTHYROXINE
  6. INGREZZA [Suspect]
     Active Substance: VALBENAZINE
     Indication: PRODUCT USED FOR UNKNOWN INDICATION
     Route: 048
     Dates: start: 2017, end: 20170806
  7. LITHIUM. [Concomitant]
     Active Substance: LITHIUM

REACTIONS (1)
  - Anxiety [Unknown]

NARRATIVE: CASE EVENT DATE: 20170822
